FAERS Safety Report 5066767-7 (Version None)
Quarter: 2006Q3

REPORT INFORMATION
  Report Type: 
  Country: None (occurrence: None)
  Receive Date: 20060801
  Receipt Date: 20060519
  Transmission Date: 20061208
  Serious: Yes (Other)
  Sender: FDA-Public Use
  Company Number: US-ROCHE-448882

PATIENT
  Age: 46 Year
  Sex: Female

DRUGS (6)
  1. INVIRASE [Suspect]
     Route: 048
     Dates: start: 20060131, end: 20060405
  2. LITHIUM CARBONATE [Suspect]
     Indication: BIPOLAR DISORDER
     Dosage: DATES: ON LITHIUM FOR SEVERAL YEARS AND STOPPED ON NOVEMBER 2005. RESTARTED NOVEMBER 2005 AND STOPP+
     Route: 048
     Dates: end: 20051115
  3. LITHIUM CARBONATE [Suspect]
     Route: 048
     Dates: start: 20051115, end: 20060415
  4. TRUVADA [Suspect]
     Route: 048
     Dates: start: 20060122, end: 20060415
  5. NORVIR [Concomitant]
     Route: 048
     Dates: start: 20060131, end: 20060415
  6. RETROVIR [Concomitant]
     Dosage: STRENGTH: 200 MG/300 MG
     Route: 048
     Dates: start: 20060122, end: 20060415

REACTIONS (5)
  - HYPOKALAEMIA [None]
  - NEPHRITIS INTERSTITIAL [None]
  - NEPHROGENIC DIABETES INSIPIDUS [None]
  - PH URINE INCREASED [None]
  - RENAL TUBULAR DISORDER [None]
